FAERS Safety Report 6691620-2 (Version None)
Quarter: 2010Q2

REPORT INFORMATION
  Report Type: 
  Country: None (occurrence: None)
  Receive Date: 20100422
  Receipt Date: 20090803
  Transmission Date: 20101027
  Serious: No
  Sender: FDA-Public Use
  Company Number: US-ASTRAZENECA-2009UW15122

PATIENT
  Age: 45 Year
  Sex: Male
  Weight: 85.3 kg

DRUGS (3)
  1. TOPROL-XL [Suspect]
     Indication: ATRIAL FIBRILLATION
     Route: 048
     Dates: start: 20030101
  2. DIGOXIN [Concomitant]
     Indication: ARRHYTHMIA
  3. ASPIRIN [Concomitant]

REACTIONS (1)
  - SARCOIDOSIS [None]
